FAERS Safety Report 10107364 (Version 2)
Quarter: 2014Q3

REPORT INFORMATION
  Report Type: Other
  Country: US (occurrence: US)
  Receive Date: 20140424
  Receipt Date: 20140930
  Transmission Date: 20150326
  Serious: Yes (Hospitalization, Other)
  Sender: FDA-Public Use
  Company Number: US-GSKPPD-2014GSK005954

PATIENT
  Age: 64 Year
  Sex: Male

DRUGS (4)
  1. IMDUR [Concomitant]
     Active Substance: ISOSORBIDE MONONITRATE
     Route: 048
  2. AVANDIA [Suspect]
     Active Substance: ROSIGLITAZONE MALEATE
     Indication: DIABETES MELLITUS
     Dosage: AVANDIA WAS NOT LISTED AMONG THE PATIENTS RECORDS REVIEWED.
     Route: 048
  3. PLAVIX [Concomitant]
     Active Substance: CLOPIDOGREL BISULFATE
  4. ASPIRIN. [Concomitant]
     Active Substance: ASPIRIN
     Route: 048

REACTIONS (2)
  - Cerebrovascular accident [Recovered/Resolved]
  - Myocardial infarction [Recovered/Resolved]

NARRATIVE: CASE EVENT DATE: 20060406
